FAERS Safety Report 4740818-9 (Version None)
Quarter: 2005Q3

REPORT INFORMATION
  Report Type: 
  Country: None (occurrence: None)
  Receive Date: 20050810
  Receipt Date: 20040902
  Transmission Date: 20060218
  Serious: No
  Sender: FDA-Public Use
  Company Number: US-GLAXOSMITHKLINE-A0524472A

PATIENT
  Age: 38 Year
  Sex: Female

DRUGS (1)
  1. TAGAMET HB 200 [Suspect]
     Route: 048

REACTIONS (9)
  - DRUG INEFFECTIVE [None]
  - DYSPEPSIA [None]
  - FLANK PAIN [None]
  - INTENTIONAL MISUSE [None]
  - OVARIAN CYST [None]
  - PELVIC PAIN [None]
  - SINUS HEADACHE [None]
  - SINUSITIS [None]
  - UTERINE LEIOMYOMA [None]
